FAERS Safety Report 15805120 (Version 3)
Quarter: 2019Q1

REPORT INFORMATION
  Report Type: Report from Study
  Country: CA (occurrence: CA)
  Receive Date: 20190110
  Receipt Date: 20190306
  Transmission Date: 20190417
  Serious: Yes (Hospitalization)
  Sender: FDA-Public Use
  Company Number: CA-TOLMAR, INC.-2019CA000155

PATIENT

DRUGS (1)
  1. ELIGARD [Suspect]
     Active Substance: LEUPROLIDE ACETATE
     Indication: PROSTATE CANCER
     Dosage: 45 MG,EVERY 6 MONTHS
     Route: 065
     Dates: start: 20180214

REACTIONS (5)
  - Viral infection [Recovered/Resolved]
  - Rash [Recovered/Resolved]
  - Angina pectoris [Recovered/Resolved]
  - Infarction [Unknown]
  - Pyrexia [Recovered/Resolved]

NARRATIVE: CASE EVENT DATE: 201811
